FAERS Safety Report 8231669-1 (Version None)
Quarter: 2012Q1

REPORT INFORMATION
  Report Type: 
  Country: None (occurrence: None)
  Receive Date: 20120323
  Receipt Date: 20120313
  Transmission Date: 20120608
  Serious: Yes (Hospitalization)
  Sender: FDA-Public Use
  Company Number: RU-PFIZER INC-2012025630

PATIENT
  Age: 66 Year
  Sex: Female
  Weight: 84.8 kg

DRUGS (6)
  1. AXITINIB [Suspect]
     Indication: METASTATIC RENAL CELL CARCINOMA
     Dosage: 5 MG, 2X/DAY
     Route: 048
     Dates: start: 20100429, end: 20100526
  2. LEVOTHYROXINE SODIUM [Concomitant]
     Indication: HYPOTHYROIDISM
     Dosage: 100 UG, 1X/DAY
     Route: 048
     Dates: start: 20100921
  3. AXITINIB [Suspect]
     Dosage: 7 MG, 2X/DAY
     Route: 048
     Dates: start: 20110224, end: 20120126
  4. ENALAPRIL [Concomitant]
     Indication: HYPERTENSION
     Dosage: 5 MG, 1X/DAY
     Route: 048
     Dates: start: 20100501
  5. AXITINIB [Suspect]
     Dosage: 7 MG, 2X/DAY
     Route: 048
     Dates: start: 20100527, end: 20100609
  6. AXITINIB [Suspect]
     Dosage: 10 MG, 2X/DAY (SINCE 09JUN2010 PM DOSE TILL 23FEB2011 PM DOSE)
     Route: 048
     Dates: start: 20100609, end: 20110223

REACTIONS (1)
  - CEREBROVASCULAR INSUFFICIENCY [None]
